FAERS Safety Report 6045237-3 (Version None)
Quarter: 2009Q1

REPORT INFORMATION
  Report Type: 
  Country: None (occurrence: None)
  Receive Date: 20090121
  Receipt Date: 20090109
  Transmission Date: 20090719
  Serious: Yes (Hospitalization)
  Sender: FDA-Public Use
  Company Number: FR-PFIZER INC-2009154956

PATIENT

DRUGS (3)
  1. SOLU-MEDROL [Suspect]
     Indication: PREMEDICATION
     Dosage: UNK
     Route: 042
     Dates: end: 20081016
  2. DOXORUBICIN HCL [Suspect]
     Indication: UTERINE CANCER
     Dosage: UNK
     Route: 042
     Dates: end: 20081016
  3. PLITICAN [Suspect]
     Indication: PREMEDICATION
     Dosage: UNK
     Route: 042
     Dates: end: 20081016

REACTIONS (2)
  - PRURITUS [None]
  - RASH [None]
